FAERS Safety Report 6993751-6 (Version None)
Quarter: 2010Q3

REPORT INFORMATION
  Report Type: 
  Country: None (occurrence: None)
  Receive Date: 20100917
  Receipt Date: 20100628
  Transmission Date: 20110219
  Serious: No
  Sender: FDA-Public Use
  Company Number: US-ASTRAZENECA-2010SE30091

PATIENT
  Age: 11450 Day
  Sex: Male
  Weight: 72.6 kg

DRUGS (1)
  1. SEROQUEL [Suspect]
     Indication: BIPOLAR DISORDER
     Route: 048
     Dates: start: 20100626, end: 20100630

REACTIONS (5)
  - ANXIETY [None]
  - DIZZINESS [None]
  - MIDDLE INSOMNIA [None]
  - RESTLESSNESS [None]
  - SOMNOLENCE [None]
